FAERS Safety Report 5319062-2 (Version None)
Quarter: 2007Q2

REPORT INFORMATION
  Report Type: 
  Country: None (occurrence: None)
  Receive Date: 20070508
  Receipt Date: 20070501
  Transmission Date: 20071010
  Serious: Yes (Hospitalization, Other)
  Sender: FDA-Public Use
  Company Number: US-MERCK-0702USA04079

PATIENT
  Age: 55 Year
  Sex: Male
  Weight: 111 kg

DRUGS (4)
  1. INVANZ [Suspect]
     Indication: PROPHYLAXIS
     Route: 042
     Dates: start: 20070220, end: 20070222
  2. MORPHINE [Concomitant]
     Indication: PAIN
     Route: 058
     Dates: start: 20070219, end: 20070305
  3. ZOFRAN [Concomitant]
     Indication: NAUSEA
     Route: 042
     Dates: start: 20070219
  4. HYDROMORPHONE HYDROCHLORIDE [Concomitant]
     Indication: PAIN
     Route: 041
     Dates: start: 20070220, end: 20070305

REACTIONS (6)
  - BLOOD BILIRUBIN INCREASED [None]
  - DIARRHOEA [None]
  - HEPATOCELLULAR DAMAGE [None]
  - JAUNDICE [None]
  - NAUSEA [None]
  - PYREXIA [None]
